FAERS Safety Report 10042666 (Version 1)
Quarter: 2014Q1

REPORT INFORMATION
  Report Type: Spontaneous
  Country: US (occurrence: None)
  Receive Date: 20140325
  Receipt Date: 20140325
  Transmission Date: 20141002
  Serious: Yes (Hospitalization)
  Sender: FDA-Public Use
  Company Number: 2014AP002060

PATIENT
  Age: 55 Year
  Sex: Male

DRUGS (15)
  1. GABAPENTIN [Suspect]
     Indication: NEURALGIA
  2. GABAPENTIN [Suspect]
     Indication: OFF LABEL USE
  3. CLOPIDOGREL [Concomitant]
  4. AMLODIPINE [Concomitant]
  5. HYDALAZINE [Concomitant]
  6. METOPROLOL [Concomitant]
  7. CLONIDINE [Concomitant]
  8. ATORVASTATIN [Concomitant]
  9. OXYCODONE [Concomitant]
  10. HYDROMORPHONE [Concomitant]
  11. SEVELAMER [Concomitant]
  12. LANTHANUM CARBONATE [Concomitant]
  13. INSULIN GLARGINE [Concomitant]
  14. VANCOMYCIN [Concomitant]
  15. PIPERACILLIN W/TAZOBACTAM [Concomitant]

REACTIONS (9)
  - Hypotension [None]
  - Localised infection [None]
  - Condition aggravated [None]
  - Lethargy [None]
  - Confusional state [None]
  - Blood creatinine increased [None]
  - Myoclonus [None]
  - Toxicity to various agents [None]
  - Mental status changes [None]
